FAERS Safety Report 7851621 (Version 5)
Quarter: 2013Q1

REPORT INFORMATION
  Report Type: Spontaneous
  Country: GB (occurrence: GB)
  Receive Date: 20110311
  Receipt Date: 20130207
  Transmission Date: 20140127
  Serious: Yes (Hospitalization, Other)
  Sender: FDA-Public Use
  Company Number: GB-RANBAXY-2011R1-42746

PATIENT
  Age: 36 Year
  Sex: Female

DRUGS (9)
  1. TOPIRAMATE [Suspect]
     Indication: EPILEPSY
     Dosage: 250 MG, DAILY
     Route: 048
  2. TOPIRAMATE [Interacting]
     Indication: CONVULSION
  3. OXCARBAZEPINE [Interacting]
     Indication: EPILEPSY
     Dosage: 1200 MG, QD
     Route: 065
  4. OXCARBAZEPINE [Interacting]
     Indication: CONVULSION
     Dosage: 1350 MG, DAILY
     Route: 065
  5. OXCARBAZEPINE [Interacting]
     Dosage: 300 MG, 1 DAYS
     Route: 065
  6. LACOSAMIDE [Interacting]
     Indication: EPILEPSY
     Dosage: 100 MG, QD
     Route: 065
  7. LACOSAMIDE [Interacting]
     Dosage: 200 MG, DAY
     Route: 065
  8. LACOSAMIDE [Interacting]
     Dosage: UNK
     Route: 065
  9. PHENYTOIN [Interacting]
     Indication: EPILEPSY
     Dosage: 150 MG,DAILY
     Route: 065

REACTIONS (6)
  - Convulsion [Recovering/Resolving]
  - Balance disorder [Recovering/Resolving]
  - Diplopia [Recovering/Resolving]
  - Neurotoxicity [Recovering/Resolving]
  - Drug interaction [Unknown]
  - Anticonvulsant drug level decreased [Unknown]
